FAERS Safety Report 5318044-4 (Version None)
Quarter: 2007Q2

REPORT INFORMATION
  Report Type: 
  Country: None (occurrence: None)
  Receive Date: 20070504
  Receipt Date: 20070504
  Transmission Date: 20071010
  Serious: Yes (Hospitalization)
  Sender: FDA-Public Use
  Company Number: None

PATIENT
  Sex: Female
  Weight: 60.782 kg

DRUGS (20)
  1. TEMOZOLOMIDE, 170MG, SCHERING [Suspect]
     Indication: MALIGNANT MELANOMA
     Dosage: 170 MG QD X 7 QO WK PO
     Route: 048
     Dates: start: 20070228, end: 20070320
  2. SUNITINIB MALATE 25 MG PFIZER [Suspect]
     Indication: MALIGNANT MELANOMA
     Dosage: 25 MG D8-28 Q 28 D PO
     Route: 048
     Dates: start: 20070307, end: 20070327
  3. TRENTAL [Concomitant]
  4. DILTIAZEM [Concomitant]
  5. AMITRIPTILINE [Concomitant]
  6. MULTIPLE VITAMIN [Concomitant]
  7. CALCIUM CARBONATE [Concomitant]
  8. VITAMIN D [Concomitant]
  9. TYLENOL [Concomitant]
  10. AMBIEN [Concomitant]
  11. COLACE [Concomitant]
  12. AMOXICILLIN [Concomitant]
  13. COMPAZINE [Concomitant]
  14. ZOFRAN [Concomitant]
  15. PROAIR HFA [Concomitant]
  16. BENEDRYL [Concomitant]
  17. NEUPOGEN [Concomitant]
  18. LEVAQUIN [Concomitant]
  19. MUCOMYST [Concomitant]
  20. PLATELETS [Concomitant]

REACTIONS (3)
  - CEREBROVASCULAR ACCIDENT [None]
  - PNEUMONIA [None]
  - SEPSIS [None]
